FAERS Safety Report 19895430 (Version 1)
Quarter: 2021Q3

REPORT INFORMATION
  Report Type: Spontaneous
  Country: ES (occurrence: ES)
  Receive Date: 20210929
  Receipt Date: 20210929
  Transmission Date: 20211014
  Serious: Yes (Hospitalization, Other)
  Sender: FDA-Public Use
  Company Number: ES-MYLANLABS-2009S1001914

PATIENT
  Age: 82 Year
  Sex: Female
  Weight: 80 kg

DRUGS (8)
  1. GABAPENTIN. [Interacting]
     Active Substance: GABAPENTIN
     Dosage: 1200 MG,QD
     Route: 048
  2. MST CONTINUS [Interacting]
     Active Substance: MORPHINE SULFATE
     Indication: BACK PAIN
  3. GABAPENTIN. [Interacting]
     Active Substance: GABAPENTIN
     Dosage: 1800 MILLIGRAM, QD (600 MG, 3X/DAY)
  4. MST CONTINUS [Interacting]
     Active Substance: MORPHINE SULFATE
     Indication: PAIN
     Dosage: 10 MG,QD
  5. GABAPENTIN. [Interacting]
     Active Substance: GABAPENTIN
     Dosage: 1200 MILLIGRAM
  6. GABAPENTIN. [Interacting]
     Active Substance: GABAPENTIN
     Dosage: 900 MILLIGRAM, QD (300 MG, 3X/DAY)
  7. GABAPENTIN. [Suspect]
     Active Substance: GABAPENTIN
     Indication: PAIN
     Dosage: 600 MG,Q8H
     Route: 048
  8. GABAPENTIN. [Interacting]
     Active Substance: GABAPENTIN
     Indication: BACK PAIN
     Dosage: 300 MG,Q8H
     Route: 048

REACTIONS (9)
  - Drug interaction [Recovered/Resolved]
  - Psychotic disorder [Recovered/Resolved]
  - Disorientation [Recovered/Resolved]
  - Hallucination, visual [Recovered/Resolved]
  - Renal impairment [Recovered/Resolved]
  - Myoclonus [Recovered/Resolved]
  - Confusional state [Recovered/Resolved]
  - Somnolence [Recovered/Resolved]
  - Chorea [Recovered/Resolved]
